FAERS Safety Report 11965030 (Version 1)
Quarter: 2016Q1

REPORT INFORMATION
  Report Type: Spontaneous
  Country: None (occurrence: None)
  Receive Date: 20160125
  Receipt Date: 20160125
  Transmission Date: 20160526
  Serious: Yes (Life-Threatening, Hospitalization)
  Sender: FDA-Public Use
  Company Number: None

PATIENT
  Age: 38 Year
  Sex: Female

DRUGS (6)
  1. RISPERDAL CONSTA [Suspect]
     Active Substance: RISPERIDONE
     Indication: BIPOLAR DISORDER
     Dosage: EVERY 2 WEEKS, INTO THE MUSCLE
  2. VITAMIN C [Concomitant]
     Active Substance: ASCORBIC ACID
  3. RISPERIDONE. [Suspect]
     Active Substance: RISPERIDONE
     Indication: BIPOLAR DISORDER
     Dosage: 3 MG 1MG AND 2MG AT NIGHT TAKEN BY MOUTH
     Dates: start: 20130814, end: 20131215
  4. ZYPREXA [Concomitant]
     Active Substance: OLANZAPINE
  5. LITHIUM. [Concomitant]
     Active Substance: LITHIUM
  6. VITAMIN B COMPLEX [Concomitant]
     Active Substance: CYANOCOBALAMIN\DEXPANTHENOL\NIACINAMIDE\PYRIDOXINE HYDROCHLORIDE\RIBOFLAVIN 5^-PHOSPHATE SODIUM\THIAMINE HYDROCHLORIDE\VITAMIN B COMPLEX

REACTIONS (5)
  - Inappropriate affect [None]
  - Hallucination, auditory [None]
  - Insomnia [None]
  - Fatigue [None]
  - Fear [None]

NARRATIVE: CASE EVENT DATE: 20130814
